FAERS Safety Report 4853174-2 (Version None)
Quarter: 2005Q4

REPORT INFORMATION
  Report Type: 
  Country: None (occurrence: None)
  Receive Date: 20051214
  Receipt Date: 20051201
  Transmission Date: 20060501
  Serious: Yes (Disabling)
  Sender: FDA-Public Use
  Company Number: ES-NOVOPROD-249047

PATIENT
  Age: 79 Year
  Sex: Male
  Weight: 98 kg

DRUGS (3)
  1. NOVOMIX 30 FLEXPEN [Suspect]
     Indication: INSULIN-REQUIRING TYPE II DIABETES MELLITUS
     Dosage: 18 + 12 IU PER DAY
     Route: 058
     Dates: start: 20050101, end: 20050301
  2. ADALAT [Concomitant]
  3. SUMIAL [Concomitant]

REACTIONS (4)
  - DIZZINESS [None]
  - DYSPNOEA [None]
  - MUSCULAR WEAKNESS [None]
  - OEDEMA [None]
